FAERS Safety Report 6153172 (Version 3)
Quarter: 2015Q1

REPORT INFORMATION
  Report Type: Spontaneous
  Country: NO (occurrence: NO)
  Receive Date: 20061025
  Receipt Date: 20150202
  Transmission Date: 20150721
  Serious: Yes (Death, Other)
  Sender: FDA-Public Use
  Company Number: NO-GLAXOSMITHKLINE-B0442952A

PATIENT
  Age: 16 Year
  Sex: Female

DRUGS (1)
  1. LAMICTAL [Suspect]
     Active Substance: LAMOTRIGINE
     Indication: EPILEPSY
     Dosage: 50+100 MG DAILY
     Route: 048

REACTIONS (4)
  - Sudden unexplained death in epilepsy [Fatal]
  - Pulmonary haemorrhage [Unknown]
  - Lung disorder [Unknown]
  - Foaming at mouth [Unknown]

NARRATIVE: CASE EVENT DATE: 20021109
